FAERS Safety Report 19895441 (Version 2)
Quarter: 2021Q4

REPORT INFORMATION
  Report Type: Report from Study
  Country: TR (occurrence: TR)
  Receive Date: 20210929
  Receipt Date: 20211014
  Transmission Date: 20220303
  Serious: Yes (Life-Threatening, Hospitalization)
  Sender: FDA-Public Use
  Company Number: TR-CELGENE-TUR-20210906935

PATIENT
  Age: 75 Year
  Sex: Female

DRUGS (24)
  1. AZACITIDINE [Suspect]
     Active Substance: AZACITIDINE
     Indication: Acute myeloid leukaemia
     Route: 058
     Dates: start: 20190924, end: 20200602
  2. AZACITIDINE [Suspect]
     Active Substance: AZACITIDINE
     Route: 058
     Dates: start: 20200629
  3. CUSATUZUMAB [Suspect]
     Active Substance: CUSATUZUMAB
     Indication: Acute myeloid leukaemia
     Route: 041
     Dates: start: 20190926, end: 20200612
  4. BISOPROLOL FUMARATE [Concomitant]
     Active Substance: BISOPROLOL FUMARATE
     Indication: Hypertension
     Dosage: 5 MILLIGRAM
     Route: 048
     Dates: start: 2017
  5. LERCANIDIPINE HYDROCHLORIDE [Concomitant]
     Active Substance: LERCANIDIPINE HYDROCHLORIDE
     Indication: Hypertension
     Dosage: 10 MILLIGRAM
     Route: 048
     Dates: start: 2017, end: 20200612
  6. FLUCONAZOLE [Concomitant]
     Active Substance: FLUCONAZOLE
     Indication: Aphthous ulcer
     Dosage: 200 MILLIGRAM
     Route: 048
     Dates: start: 20191030
  7. NYSTATIN [Concomitant]
     Active Substance: NYSTATIN
     Indication: Aphthous ulcer
     Dosage: 144 MILLIGRAM
     Route: 048
     Dates: start: 20191030
  8. AKLOVIR [Concomitant]
     Indication: Aphthous ulcer
     Dosage: 40 MILLIGRAM
     Route: 065
     Dates: start: 20191121
  9. TRIAMCINOLONE ACETONIDE [Concomitant]
     Active Substance: TRIAMCINOLONE ACETONIDE
     Indication: Aphthous ulcer
     Dosage: 15 MILLIGRAM
     Route: 048
     Dates: start: 20191121
  10. KYTRIL [Concomitant]
     Active Substance: GRANISETRON HYDROCHLORIDE
     Indication: Prophylaxis of nausea and vomiting
     Dosage: 2 MILLIGRAM
     Route: 048
     Dates: start: 20191121
  11. KYTRIL [Concomitant]
     Active Substance: GRANISETRON HYDROCHLORIDE
     Route: 041
     Dates: start: 20191221
  12. MAGNESIUM [Concomitant]
     Active Substance: MAGNESIUM
     Indication: Fatigue
     Dosage: 365 MILLIGRAM
     Route: 048
     Dates: start: 20200205
  13. CALCIMAX D3 [Concomitant]
     Indication: Fatigue
     Dosage: 1000 MILLIGRAM
     Route: 048
     Dates: start: 20200205
  14. PANTOPRAZOLE SODIUM [Concomitant]
     Active Substance: PANTOPRAZOLE SODIUM
     Indication: Prophylaxis
     Dosage: 80 MILLIGRAM
     Route: 048
     Dates: start: 20200520
  15. VORIKONAZOL [Concomitant]
     Indication: Neutropenia
     Dosage: 400 MILLIGRAM
     Route: 048
     Dates: start: 20200520
  16. PAROL [Concomitant]
     Active Substance: ACETAMINOPHEN
     Indication: Neutropenia
     Route: 048
     Dates: start: 20200520
  17. PAROL [Concomitant]
     Active Substance: ACETAMINOPHEN
     Indication: Premedication
     Dosage: 1000 MILLIGRAM
     Route: 048
     Dates: start: 20200612, end: 20200612
  18. PAROL [Concomitant]
     Active Substance: ACETAMINOPHEN
     Indication: Pyrexia
     Dosage: 1 GRAM
     Route: 041
     Dates: start: 20200630, end: 20200714
  19. DUPHALAC [Concomitant]
     Active Substance: LACTULOSE
     Indication: Constipation prophylaxis
     Dosage: 670 MILLIGRAM
     Route: 048
     Dates: start: 20200520
  20. DIFLUCORTOLONE VALERATE\ISOCONAZOLE NITRATE [Concomitant]
     Active Substance: DIFLUCORTOLONE VALERATE\ISOCONAZOLE NITRATE
     Indication: Antifungal prophylaxis
     Route: 061
     Dates: start: 20200520
  21. VALACYCLOVIR HYDROCHLORIDE [Concomitant]
     Active Substance: VALACYCLOVIR HYDROCHLORIDE
     Indication: Febrile neutropenia
     Dosage: 500 MILLIGRAM
     Route: 048
     Dates: start: 20200520
  22. KCL [Concomitant]
     Active Substance: POTASSIUM CHLORIDE
     Indication: Hypokalaemia
     Dosage: 40 MILLIGRAM
     Route: 048
     Dates: start: 20200609
  23. PREDNOL [Concomitant]
     Indication: Premedication
     Route: 041
     Dates: start: 20200612, end: 20200612
  24. PHENIRAMINE [Concomitant]
     Active Substance: PHENIRAMINE
     Indication: Premedication
     Route: 041
     Dates: start: 20200612, end: 20200612

REACTIONS (2)
  - Febrile neutropenia [Recovered/Resolved]
  - Pneumonia [Recovered/Resolved]

NARRATIVE: CASE EVENT DATE: 20200623
